FAERS Safety Report 7427072-4 (Version None)
Quarter: 2011Q2

REPORT INFORMATION
  Report Type: 
  Country: None (occurrence: None)
  Receive Date: 20110420
  Receipt Date: 20110418
  Transmission Date: 20111010
  Serious: Yes (Death, Hospitalization, Other)
  Sender: FDA-Public Use
  Company Number: PHHO2010US15387

PATIENT
  Sex: Male

DRUGS (9)
  1. SIMULECT [Suspect]
     Dosage: 20MG
     Route: 042
     Dates: start: 20090513
  2. PARACENTESIS ABDOMINAL [Concomitant]
  3. DIALYSIS [Concomitant]
  4. CELLCEPT [Suspect]
  5. ZOLOFT [Concomitant]
  6. URSODIOL [Concomitant]
  7. SIMULECT [Suspect]
     Indication: LIVER TRANSPLANT
     Dosage: 20MG
     Route: 042
     Dates: start: 20090511
  8. DIURETICS [Concomitant]
  9. BELATACEPT [Suspect]

REACTIONS (6)
  - PULMONARY OEDEMA [None]
  - COAGULOPATHY [None]
  - RESPIRATORY DISTRESS [None]
  - TREMOR [None]
  - MULTI-ORGAN FAILURE [None]
  - HEPATITIS C [None]
